FAERS Safety Report 7421147-1 (Version None)
Quarter: 2011Q2

REPORT INFORMATION
  Report Type: 
  Country: None (occurrence: None)
  Receive Date: 20110418
  Receipt Date: 20110412
  Transmission Date: 20111010
  Serious: Yes (Hospitalization)
  Sender: FDA-Public Use
  Company Number: US-ABBOTT-11P-163-0718781-00

PATIENT
  Sex: Female

DRUGS (1)
  1. HUMIRA [Suspect]
     Indication: CROHN'S DISEASE
     Dates: start: 20090409, end: 20090430

REACTIONS (5)
  - CROHN'S DISEASE [None]
  - STOMATITIS [None]
  - ADVERSE DRUG REACTION [None]
  - VIRAL INFECTION [None]
  - OEDEMA MOUTH [None]
